FAERS Safety Report 11714064 (Version 1)
Quarter: 2015Q4

REPORT INFORMATION
  Report Type: Spontaneous
  Country: US (occurrence: US)
  Receive Date: 20151109
  Receipt Date: 20151109
  Transmission Date: 20160304
  Serious: No
  Sender: FDA-Public Use
  Company Number: US-PFIZER INC-2015367080

PATIENT
  Age: 53 Year
  Sex: Female
  Weight: 88.44 kg

DRUGS (4)
  1. HYDROCODONE [Concomitant]
     Active Substance: HYDROCODONE
     Dosage: UNK
  2. LYRICA [Suspect]
     Active Substance: PREGABALIN
     Indication: AUTONOMIC NEUROPATHY
     Dosage: 150 MG, 2X/DAY
     Dates: start: 2015, end: 20151027
  3. CYMBALTA [Concomitant]
     Active Substance: DULOXETINE HYDROCHLORIDE
     Dosage: UNK
  4. OXYCODONE [Concomitant]
     Active Substance: OXYCODONE
     Dosage: UNK

REACTIONS (1)
  - Drug effect incomplete [Unknown]

NARRATIVE: CASE EVENT DATE: 2015
